FAERS Safety Report 12892949 (Version 1)
Quarter: 2016Q4

REPORT INFORMATION
  Report Type: Report from Study
  Country: ES (occurrence: ES)
  Receive Date: 20161028
  Receipt Date: 20161028
  Transmission Date: 20170207
  Serious: Yes (Hospitalization)
  Sender: FDA-Public Use
  Company Number: ES-AMGEN-ESPNI2016149296

PATIENT
  Age: 68 Year
  Sex: Male
  Weight: 80 kg

DRUGS (1)
  1. PANITUMUMAB [Suspect]
     Active Substance: PANITUMUMAB
     Indication: COLON CANCER
     Dosage: 504 MG, Q2WK
     Route: 042
     Dates: start: 20160726, end: 20161019

REACTIONS (3)
  - Diarrhoea [Recovering/Resolving]
  - Infection [Recovering/Resolving]
  - Haematotoxicity [Recovering/Resolving]

NARRATIVE: CASE EVENT DATE: 20161024
